FAERS Safety Report 6874917-2 (Version None)
Quarter: 2010Q3

REPORT INFORMATION
  Report Type: 
  Country: None (occurrence: None)
  Receive Date: 20100723
  Receipt Date: 20100714
  Transmission Date: 20110219
  Serious: Yes (Hospitalization)
  Sender: FDA-Public Use
  Company Number: 2010MA000810

PATIENT
  Age: 59 Year
  Sex: Female

DRUGS (10)
  1. DIAZEPAM TABLETS USP, 2 MG (PUREPAC) (DIAZEPAM) [Suspect]
     Indication: SEDATION
     Dosage: 2 MG;QD;PO
     Route: 048
     Dates: start: 20030125, end: 20030125
  2. VIOXX [Suspect]
     Indication: PREOPERATIVE CARE
     Dosage: 25 MG;BID;PO
     Route: 048
     Dates: start: 20030122, end: 20030122
  3. HALDID [Concomitant]
  4. EPHEDRIN [Concomitant]
  5. DIPRIVAN [Concomitant]
  6. BUPIVACAINE HCL [Concomitant]
  7. ROCURONIUM BROMIDE [Concomitant]
  8. SUFENTA PRESERVATIVE FREE [Concomitant]
  9. ACETAMINOPHEN [Concomitant]
  10. PREV MEDS [Concomitant]

REACTIONS (1)
  - URTICARIA [None]
